FAERS Safety Report 8014954-8 (Version None)
Quarter: 2011Q4

REPORT INFORMATION
  Report Type: 
  Country: None (occurrence: None)
  Receive Date: 20111229
  Receipt Date: 20111107
  Transmission Date: 20120403
  Serious: Yes (Other)
  Sender: FDA-Public Use
  Company Number: PHHY2011JP88965

PATIENT
  Age: 32 Year
  Sex: Female

DRUGS (2)
  1. METHYLERGOMETRINE MALEATE [Suspect]
     Route: 048
  2. OXYTOCIN [Suspect]
     Indication: UTERINE HAEMORRHAGE
     Route: 042

REACTIONS (7)
  - CEREBRAL VASOCONSTRICTION [None]
  - CEREBRAL ARTERY STENOSIS [None]
  - HEADACHE [None]
  - EPIGASTRIC DISCOMFORT [None]
  - CEREBROVASCULAR SPASM [None]
  - CHEST DISCOMFORT [None]
  - VERTEBRAL ARTERY STENOSIS [None]
